FAERS Safety Report 18172718 (Version 3)
Quarter: 2025Q3

REPORT INFORMATION
  Report Type: Spontaneous
  Country: US (occurrence: US)
  Receive Date: 20200820
  Receipt Date: 20250929
  Transmission Date: 20251021
  Serious: Yes (Hospitalization, Other)
  Sender: AUROBINDO
  Company Number: US-AUROBINDO-AUR-APL-2020-040262

PATIENT
  Sex: Female

DRUGS (4)
  1. CAPECITABINE [Interacting]
     Active Substance: CAPECITABINE
     Indication: Triple negative breast cancer
     Route: 065
  2. CAPECITABINE [Interacting]
     Active Substance: CAPECITABINE
     Indication: Breast cancer stage III
  3. PHENYTOIN [Interacting]
     Active Substance: PHENYTOIN
     Indication: Seizure prophylaxis
     Route: 065
  4. LACOSAMIDE [Concomitant]
     Active Substance: LACOSAMIDE
     Indication: Seizure
     Route: 065

REACTIONS (5)
  - Amnesia [Recovering/Resolving]
  - Dyskinesia [Recovered/Resolved]
  - Confusional state [Recovered/Resolved]
  - Toxicity to various agents [Recovered/Resolved]
  - Drug interaction [Recovered/Resolved]
